FAERS Safety Report 6826337-4 (Version None)
Quarter: 2010Q3

REPORT INFORMATION
  Report Type: 
  Country: None (occurrence: None)
  Receive Date: 20100709
  Receipt Date: 20100628
  Transmission Date: 20110219
  Serious: Yes (Hospitalization)
  Sender: FDA-Public Use
  Company Number: FR-BRISTOL-MYERS SQUIBB COMPANY-15181886

PATIENT
  Age: 84 Year
  Sex: Female

DRUGS (6)
  1. GLUCOPHAGE [Suspect]
     Indication: TYPE 2 DIABETES MELLITUS
     Route: 048
  2. TRIATEC [Suspect]
     Route: 048
  3. LASIX [Suspect]
     Indication: HYPERTENSION
     Route: 048
  4. ASPEGIC 1000 [Concomitant]
     Route: 048
  5. PLAVIX [Concomitant]
     Route: 048
  6. CARDENSIEL [Concomitant]
     Route: 048

REACTIONS (7)
  - ANAEMIA [None]
  - DIARRHOEA [None]
  - HYPERKALAEMIA [None]
  - LACTIC ACIDOSIS [None]
  - RENAL FAILURE ACUTE [None]
  - VOMITING [None]
  - WHITE BLOOD CELL COUNT INCREASED [None]
